FAERS Safety Report 6638016-7 (Version None)
Quarter: 2010Q1

REPORT INFORMATION
  Report Type: 
  Country: None (occurrence: None)
  Receive Date: 20100312
  Receipt Date: 20100226
  Transmission Date: 20100710
  Serious: Yes (Hospitalization)
  Sender: FDA-Public Use
  Company Number: AMAG201000140

PATIENT

DRUGS (1)
  1. FERAHEME [Suspect]
     Dosage: 510 MG, SINGLE, INTRAVENOUS
     Route: 042

REACTIONS (3)
  - ANGIOEDEMA [None]
  - HYPERSENSITIVITY [None]
  - SKIN DISCOLOURATION [None]
